FAERS Safety Report 7703868-6 (Version None)
Quarter: 2011Q3

REPORT INFORMATION
  Report Type: 
  Country: None (occurrence: None)
  Receive Date: 20110823
  Receipt Date: 20110812
  Transmission Date: 20111222
  Serious: Yes (Hospitalization, Other)
  Sender: FDA-Public Use
  Company Number: US-BAYER-2010-002988

PATIENT
  Age: 39 Year
  Sex: Female
  Weight: 54.422 kg

DRUGS (37)
  1. ALPRAZOLAM [Concomitant]
     Dosage: UNK
     Dates: start: 20070901, end: 20071201
  2. PROMETHAZINE [Concomitant]
     Dosage: UNK
     Dates: start: 20070101
  3. NEXIUM [Concomitant]
     Dosage: 40 MG, UNK
     Route: 048
     Dates: start: 20070504
  4. LOMOTIL [DIPHENOXYLATE HYDROCHLORIDE] [Concomitant]
     Dosage: 0.025 MG, UNK
     Route: 048
     Dates: start: 20070504
  5. QUALIQUIN [Concomitant]
     Indication: MUSCLE SPASMS
     Dosage: UNK
     Dates: start: 20070101
  6. OXAPROZIN [Concomitant]
     Dosage: UNK
     Dates: start: 20070401
  7. KETOCONAZOLE [Concomitant]
     Dosage: UNK
     Dates: start: 20070101
  8. LIBRAX [Concomitant]
     Dosage: 5 MG, UNK
     Route: 048
     Dates: start: 20070504
  9. YAZ [Suspect]
     Indication: ACNE
     Dosage: UNK
     Route: 048
     Dates: start: 20060801, end: 20080701
  10. HYDROCODONE BITARTRATE [Concomitant]
     Dosage: UNK
     Dates: start: 20070101
  11. BENTYL [Concomitant]
     Dosage: 10 MG, UNK
     Route: 048
     Dates: start: 20070504
  12. METRONIDAZOLE [Concomitant]
     Dosage: 250 MG, UNK
     Route: 048
     Dates: start: 20070504
  13. YAZ [Suspect]
     Indication: PREMENSTRUAL SYNDROME
  14. CEPHALEXIN [Concomitant]
     Dosage: UNK
     Dates: start: 20070201
  15. ROZEREM [Concomitant]
     Dosage: UNK
     Dates: start: 20070101
  16. YAZ [Suspect]
     Indication: POLYCYSTIC OVARIES
  17. YASMIN [Suspect]
     Indication: CONTRACEPTION
  18. LEVAQUIN [Concomitant]
     Dosage: UNK
     Dates: start: 20070101
  19. LOMOTIL [DIPHENOXYLATE HYDROCHLORIDE] [Concomitant]
     Dosage: 2.5 MG, UNK
     Route: 048
     Dates: start: 20070504
  20. DARVOCET [Concomitant]
     Dosage: UNK
     Route: 048
     Dates: start: 20070504
  21. YASMIN [Suspect]
     Indication: ACNE
     Dosage: UNK
     Route: 048
     Dates: start: 20060601, end: 20060801
  22. YASMIN [Suspect]
     Indication: PREMENSTRUAL SYNDROME
  23. ALPRAZOLAM [Concomitant]
     Dosage: UNK
     Dates: start: 20060301, end: 20070301
  24. AMOXICILLIN [Concomitant]
     Dosage: UNK
     Dates: start: 20070101
  25. DIFLUCAN [Concomitant]
     Dosage: UNK
     Dates: start: 20070101
  26. DIPHENOXYLATE [Concomitant]
     Dosage: UNK
     Dates: start: 20070101
  27. OXYCODONE HCL [Concomitant]
     Dosage: UNK
     Dates: start: 20070101
  28. WELCHOL [Concomitant]
     Dosage: UNK
     Dates: start: 20070101
  29. CHLORDIAZOLE [Concomitant]
     Dosage: UNK
     Dates: start: 20070101
  30. ALPRAZOLAM [Concomitant]
     Indication: ANXIETY
     Dosage: UNK
     Dates: start: 20070101
  31. FLUCONAZOLE [Concomitant]
     Dosage: UNK
     Dates: start: 20070101
  32. HYOSCYAMINE [Concomitant]
     Dosage: UNK
     Dates: start: 20070101
  33. YAZ [Suspect]
     Indication: CONTRACEPTION
  34. BELLADONNA AND DERIVATIVES [Concomitant]
     Dosage: UNK
     Dates: start: 20070101
  35. METOCLOPRAMIDE [Concomitant]
     Dosage: UNK
     Dates: start: 20070101
  36. LIBRAX [Concomitant]
     Dosage: 2.5 MG, UNK
     Route: 048
     Dates: start: 20070504
  37. QUALIQUIN [Concomitant]
     Dosage: UNK
     Dates: start: 20080901, end: 20090101

REACTIONS (2)
  - CHOLELITHIASIS [None]
  - CHOLECYSTITIS ACUTE [None]
